FAERS Safety Report 16632238 (Version 1)
Quarter: 2019Q3

REPORT INFORMATION
  Report Type: Spontaneous
  Country: US (occurrence: US)
  Receive Date: 20190725
  Receipt Date: 20190725
  Transmission Date: 20191004
  Serious: No
  Sender: FDA-Public Use
  Company Number: US-ABBVIE-19S-163-2692258-00

PATIENT
  Sex: Female
  Weight: 51.71 kg

DRUGS (11)
  1. CALTRATE 600+D3 PLUS MINERALS [CALCIUM CARBONATE;COLECALCIFEROL;COPPER [Suspect]
     Active Substance: CALCIUM\CHOLECALCIFEROL\COPPER\MAGNESIUM\MANGANESE\ZINC
     Dosage: BEGAN MINI TABLETS
     Route: 048
     Dates: start: 20190301
  2. SYNTHROID [Suspect]
     Active Substance: LEVOTHYROXINE SODIUM
     Dosage: BLUE TABLETS
     Route: 048
     Dates: start: 201507
  3. CALTRATE 600+D3 PLUS MINERALS [CALCIUM CARBONATE;COLECALCIFEROL;COPPER [Suspect]
     Active Substance: CALCIUM\CHOLECALCIFEROL\COPPER\MAGNESIUM\MANGANESE\ZINC
     Route: 048
  4. FAMOTIDINE. [Concomitant]
     Active Substance: FAMOTIDINE
     Indication: GASTROOESOPHAGEAL REFLUX DISEASE
     Route: 048
     Dates: start: 201707
  5. B6 [Concomitant]
     Active Substance: PYRIDOXINE HYDROCHLORIDE
     Indication: PRODUCT USED FOR UNKNOWN INDICATION
  6. CALTRATE 600+D3 PLUS MINERALS [CALCIUM CARBONATE;COLECALCIFEROL;COPPER [Suspect]
     Active Substance: CALCIUM\CHOLECALCIFEROL\COPPER\MAGNESIUM\MANGANESE\ZINC
     Indication: OSTEOPOROSIS
     Dosage: 1 AT LUNCH AND 1 AT DINNER
     Route: 048
     Dates: start: 201703
  7. FAMOTIDINE. [Concomitant]
     Active Substance: FAMOTIDINE
     Indication: PRODUCT USED FOR UNKNOWN INDICATION
     Route: 065
  8. SYNTHROID [Suspect]
     Active Substance: LEVOTHYROXINE SODIUM
     Indication: HYPOTHYROIDISM
     Route: 048
     Dates: start: 199612, end: 201507
  9. SYNTHROID [Suspect]
     Active Substance: LEVOTHYROXINE SODIUM
     Dosage: WHITE TABLETS, IN THE MORNING
     Route: 048
  10. RANITIDINE. [Concomitant]
     Active Substance: RANITIDINE
     Indication: GASTROOESOPHAGEAL REFLUX DISEASE
     Dates: end: 201707
  11. MAGNESIUM [Concomitant]
     Active Substance: MAGNESIUM
     Indication: PRODUCT USED FOR UNKNOWN INDICATION

REACTIONS (6)
  - Rash [Recovered/Resolved]
  - Osteoporosis [Not Recovered/Not Resolved]
  - Reaction to excipient [Unknown]
  - Dysphagia [Recovered/Resolved]
  - Pharyngo-oesophageal diverticulum [Not Recovered/Not Resolved]
  - Tongue discomfort [Recovered/Resolved]

NARRATIVE: CASE EVENT DATE: 1996
